FAERS Safety Report 5860117-1 (Version None)
Quarter: 2008Q3

REPORT INFORMATION
  Report Type: 
  Country: None (occurrence: None)
  Receive Date: 20080818
  Receipt Date: 20080422
  Transmission Date: 20090109
  Serious: No
  Sender: FDA-Public Use
  Company Number: WAES 0804USA04730

PATIENT
  Age: 58 Year
  Sex: Female

DRUGS (6)
  1. JANUVIA [Suspect]
     Indication: DIABETES MELLITUS
     Dosage: 50 MG/DAILY/PO
     Route: 048
     Dates: start: 20070101
  2. AMLODIPINE BESYLATE [Concomitant]
  3. CLONIDINE [Concomitant]
  4. HYDRALAZINE HCL [Concomitant]
  5. INSULIN [Concomitant]
  6. METOPROLOL TARTRATE [Concomitant]

REACTIONS (2)
  - BLOOD GLUCOSE INCREASED [None]
  - GLYCOSYLATED HAEMOGLOBIN INCREASED [None]
